FAERS Safety Report 5484917-5 (Version None)
Quarter: 2007Q4

REPORT INFORMATION
  Report Type: 
  Country: None (occurrence: None)
  Receive Date: 20071011
  Receipt Date: 20070920
  Transmission Date: 20080405
  Serious: Yes (Death)
  Sender: FDA-Public Use
  Company Number: US021289

PATIENT
  Sex: Male

DRUGS (1)
  1. ACTIQ [Suspect]
     Indication: CANCER PAIN
     Dosage: BUCCAL
     Route: 002

REACTIONS (1)
  - DEATH [None]
